FAERS Safety Report 11138802 (Version 1)
Quarter: 2015Q2

REPORT INFORMATION
  Report Type: Spontaneous
  Country: US (occurrence: None)
  Receive Date: 20150526
  Receipt Date: 20150526
  Transmission Date: 20150821
  Serious: No
  Sender: FDA-Public Use
  Company Number: None

PATIENT
  Age: 56 Year
  Sex: Female

DRUGS (11)
  1. MUPIROCIN. [Concomitant]
     Active Substance: MUPIROCIN
  2. WARFARIN [Concomitant]
     Active Substance: WARFARIN
  3. CARVEILOL [Concomitant]
  4. ONDANSETRON [Concomitant]
     Active Substance: ONDANSETRON
  5. LOSARTAN [Concomitant]
     Active Substance: LOSARTAN
  6. DULERA [Concomitant]
     Active Substance: FORMOTEROL FUMARATE DIHYDRATE\MOMETASONE FUROATE
  7. OXYCODON [Concomitant]
     Active Substance: OXYCODONE
  8. MORPHINE [Concomitant]
     Active Substance: MORPHINE
  9. LORAZEPAM. [Concomitant]
     Active Substance: LORAZEPAM
  10. IBRANCE [Suspect]
     Active Substance: PALBOCICLIB
     Indication: BREAST CANCER
     Dates: start: 201505
  11. POTASSIUM [Concomitant]
     Active Substance: POTASSIUM

REACTIONS (1)
  - Anaemia [None]

NARRATIVE: CASE EVENT DATE: 201505
